FAERS Safety Report 25164367 (Version 1)
Quarter: 2025Q2

REPORT INFORMATION
  Report Type: Spontaneous
  Country: GB (occurrence: NL)
  Receive Date: 20250405
  Receipt Date: 20250405
  Transmission Date: 20250716
  Serious: Yes (Other)
  Sender: IPSEN
  Company Number: GB-IPSEN Group, Research and Development-2025-03787

PATIENT
  Age: 31 Year
  Sex: Female
  Weight: 61 kg

DRUGS (5)
  1. BYLVAY [Suspect]
     Active Substance: ODEVIXIBAT
     Indication: Cholestasis
     Dosage: 1200 MCG ONCE DAILY
     Route: 065
     Dates: start: 20241206
  2. BYLVAY [Suspect]
     Active Substance: ODEVIXIBAT
     Dosage: 2400 MCG/ DAY
     Route: 065
     Dates: start: 20241224
  3. BYLVAY [Suspect]
     Active Substance: ODEVIXIBAT
     Dosage: 3600 MCG/ DAY
     Route: 065
     Dates: start: 20250107
  4. BYLVAY [Suspect]
     Active Substance: ODEVIXIBAT
     Dosage: 4800 MCG/ DAY
     Route: 065
     Dates: start: 20250120
  5. URSODIOL [Concomitant]
     Active Substance: URSODIOL
     Indication: Cholestasis of pregnancy
     Dosage: ONGOING

REACTIONS (5)
  - Foetal hypokinesia [Unknown]
  - Diarrhoea [Recovered/Resolved]
  - Anxiety [Unknown]
  - Pruritus [Recovering/Resolving]
  - Exposure during pregnancy [Unknown]

NARRATIVE: CASE EVENT DATE: 20241206
